FAERS Safety Report 9537213 (Version 2)
Quarter: 2013Q3

REPORT INFORMATION
  Report Type: Spontaneous
  Country: US (occurrence: US)
  Receive Date: 20130919
  Receipt Date: 20130919
  Transmission Date: 20140515
  Serious: No
  Sender: FDA-Public Use
  Company Number: US-PURDUE-USA-2012-0094171

PATIENT
  Age: 65 Year
  Sex: Male
  Weight: 96.15 kg

DRUGS (2)
  1. INTERMEZZO [Suspect]
     Indication: INSOMNIA
     Dosage: 3.5 MG, HS
     Route: 060
     Dates: start: 20121004, end: 20121005
  2. XANAX [Concomitant]
     Indication: INSOMNIA
     Dosage: 1 MG, HS
     Route: 048

REACTIONS (4)
  - Drug ineffective for unapproved indication [Not Recovered/Not Resolved]
  - Inappropriate schedule of drug administration [Unknown]
  - Insomnia [Unknown]
  - Anxiety [Recovered/Resolved]
